FAERS Safety Report 22611789 (Version 1)
Quarter: 2023Q2

REPORT INFORMATION
  Report Type: Spontaneous
  Country: DE (occurrence: DE)
  Receive Date: 20230616
  Receipt Date: 20230616
  Transmission Date: 20230722
  Serious: Yes (Other)
  Sender: FDA-Public Use
  Company Number: DE-002147023-NVSC2023DE128185

PATIENT
  Sex: Male

DRUGS (5)
  1. CYCLOSPORINE [Suspect]
     Active Substance: CYCLOSPORINE
     Indication: C3 glomerulopathy
     Dosage: UNK
     Route: 065
     Dates: start: 2011, end: 2014
  2. CYCLOSPORINE [Suspect]
     Active Substance: CYCLOSPORINE
     Indication: Chronic kidney disease
  3. RITUXIMAB [Suspect]
     Active Substance: RITUXIMAB
     Indication: C3 glomerulopathy
     Dosage: UNK
     Route: 065
     Dates: start: 201411
  4. RITUXIMAB [Suspect]
     Active Substance: RITUXIMAB
     Indication: Chronic kidney disease
  5. SOLIRIS [Suspect]
     Active Substance: ECULIZUMAB
     Indication: Product used for unknown indication
     Dosage: UNK
     Route: 065
     Dates: start: 2016

REACTIONS (1)
  - End stage renal disease [Unknown]
